FAERS Safety Report 24975887 (Version 1)
Quarter: 2025Q1

REPORT INFORMATION
  Report Type: Spontaneous
  Country: US (occurrence: US)
  Receive Date: 20250217
  Receipt Date: 20250217
  Transmission Date: 20250409
  Serious: Yes (Other)
  Sender: COOPERSURGICAL
  Company Number: US-COOPERSURGICAL, INC.-2025CPS000871

PATIENT
  Age: 33 Year
  Sex: Female
  Weight: 64.853 kg

DRUGS (1)
  1. PARAGARD T 380A [Suspect]
     Active Substance: COPPER
     Route: 015
     Dates: start: 20190719

REACTIONS (11)
  - High risk pregnancy [Recovered/Resolved]
  - Device breakage [Not Recovered/Not Resolved]
  - Foreign body in reproductive tract [Not Recovered/Not Resolved]
  - Complication of device removal [Not Recovered/Not Resolved]
  - Pregnancy with contraceptive device [Recovered/Resolved]
  - Drug ineffective [Unknown]
  - Emotional disorder [Unknown]
  - Gait inability [Recovered/Resolved]
  - Procedural pain [Recovered/Resolved]
  - Pain [Recovered/Resolved]
  - Muscle spasms [Recovered/Resolved]

NARRATIVE: CASE EVENT DATE: 20210702
